FAERS Safety Report 6898437-4 (Version None)
Quarter: 2010Q3

REPORT INFORMATION
  Report Type: 
  Country: None (occurrence: None)
  Receive Date: 20100802
  Receipt Date: 20071023
  Transmission Date: 20110219
  Serious: No
  Sender: FDA-Public Use
  Company Number: US-PFIZER INC-2007089136

PATIENT
  Sex: Female
  Weight: 90.9 kg

DRUGS (2)
  1. LYRICA [Suspect]
     Indication: NEUROPATHY PERIPHERAL
     Route: 048
     Dates: start: 20071018
  2. SYNTHROID [Concomitant]
     Route: 048
     Dates: start: 19870101

REACTIONS (5)
  - CONSTIPATION [None]
  - DRY MOUTH [None]
  - SLEEP DISORDER [None]
  - VISION BLURRED [None]
  - WEIGHT INCREASED [None]
